FAERS Safety Report 17597794 (Version 5)
Quarter: 2020Q4

REPORT INFORMATION
  Report Type: Spontaneous
  Country: US (occurrence: US)
  Receive Date: 20200330
  Receipt Date: 20201013
  Transmission Date: 20210113
  Serious: Yes (Hospitalization, Other)
  Sender: FDA-Public Use
  Company Number: US-PFIZER INC-2020124112

PATIENT
  Age: 60 Year
  Sex: Female

DRUGS (1)
  1. XELJANZ XR [Suspect]
     Active Substance: TOFACITINIB CITRATE
     Indication: RHEUMATOID ARTHRITIS
     Dosage: 11 MG, ONCE A DAY
     Route: 048
     Dates: start: 20190912

REACTIONS (13)
  - Joint stiffness [Recovered/Resolved]
  - Dehydration [Unknown]
  - Gait inability [Recovered/Resolved]
  - Contusion [Unknown]
  - Head injury [Unknown]
  - Fall [Unknown]
  - Orthostatic hypotension [Unknown]
  - Product dose omission issue [Unknown]
  - Skin laceration [Unknown]
  - Bronchitis [Recovered/Resolved]
  - Loss of consciousness [Unknown]
  - Urinary tract infection [Unknown]
  - Arthralgia [Recovered/Resolved]

NARRATIVE: CASE EVENT DATE: 20200416
